FAERS Safety Report 7085073-2 (Version None)
Quarter: 2010Q4

REPORT INFORMATION
  Report Type: 
  Country: None (occurrence: None)
  Receive Date: 20101026
  Receipt Date: 20101013
  Transmission Date: 20110411
  Serious: No
  Sender: FDA-Public Use
  Company Number: 2010100021

PATIENT
  Age: 35 Year
  Sex: Female
  Weight: 58.514 kg

DRUGS (6)
  1. ONSOLIS [Suspect]
     Indication: CANCER PAIN
     Dosage: 800 MCG (200 MCG, 1 IN 6 HR), BU; (200 MCG, UP TO 4 TIMES DAILY), BU
     Route: 002
     Dates: start: 20100827, end: 20100906
  2. ONSOLIS [Suspect]
     Indication: CANCER PAIN
     Dosage: 800 MCG (200 MCG, 1 IN 6 HR), BU; (200 MCG, UP TO 4 TIMES DAILY), BU
     Route: 002
     Dates: start: 20100907
  3. SOMA [Concomitant]
  4. IBUPROFEN [Concomitant]
  5. FENTANYL-100 [Concomitant]
  6. PERCOCET [Concomitant]

REACTIONS (1)
  - INCORRECT DOSE ADMINISTERED [None]
